FAERS Safety Report 5600954-1 (Version None)
Quarter: 2008Q1

REPORT INFORMATION
  Report Type: 
  Country: None (occurrence: None)
  Receive Date: 20080124
  Receipt Date: 20080115
  Transmission Date: 20080703
  Serious: Yes (Other)
  Sender: FDA-Public Use
  Company Number: PHEH2008US00864

PATIENT
  Sex: Female

DRUGS (2)
  1. LOPRESSOR [Suspect]
     Dosage: 1/2 TABLET, QOD
     Route: 048
  2. LOPRESSOR [Suspect]
     Dosage: 1/2 TABLET, QD
     Route: 048

REACTIONS (10)
  - AMNESIA [None]
  - BREAST CANCER [None]
  - BREAST CANCER FEMALE [None]
  - CONFUSIONAL STATE [None]
  - DEPRESSION [None]
  - FALL [None]
  - LOSS OF CONSCIOUSNESS [None]
  - PURPURA [None]
  - SLEEP DISORDER [None]
  - VERTIGO [None]
